FAERS Safety Report 15996982 (Version 2)
Quarter: 2019Q1

REPORT INFORMATION
  Report Type: Spontaneous
  Country: KR (occurrence: KR)
  Receive Date: 20190222
  Receipt Date: 20190305
  Transmission Date: 20190418
  Serious: Yes (Hospitalization)
  Sender: FDA-Public Use
  Company Number: KR-009507513-1902KOR007165

PATIENT
  Sex: Male

DRUGS (5)
  1. KEYTRUDA [Suspect]
     Active Substance: PEMBROLIZUMAB
     Indication: SALIVARY GLAND CANCER
     Dosage: UNK, Q3W; QUANTITY:2, DAYS 1
     Dates: start: 20181231
  2. MYDRIN [Concomitant]
     Dosage: QUANTITY: 20
     Route: 048
     Dates: start: 20181227, end: 20190102
  3. GLUTATHIONE [Concomitant]
     Active Substance: GLUTATHIONE
     Dosage: QUANTITY: 20
     Route: 048
     Dates: start: 20181227, end: 20190102
  4. KEYTRUDA [Suspect]
     Active Substance: PEMBROLIZUMAB
     Indication: SALIVARY GLAND CANCER RECURRENT
     Dosage: UNK, Q3W, QUANTITY:2, DAYS 1
     Dates: start: 20190121
  5. KEYTRUDA [Suspect]
     Active Substance: PEMBROLIZUMAB
     Dosage: UNK, Q3W, QUANTITY:2, DAYS 1
     Dates: start: 20190211

REACTIONS (2)
  - Adverse event [Unknown]
  - Product use in unapproved indication [Unknown]

NARRATIVE: CASE EVENT DATE: 20181231
